FAERS Safety Report 10044341 (Version 1)
Quarter: 2014Q1

REPORT INFORMATION
  Report Type: Spontaneous
  Country: CL (occurrence: CL)
  Receive Date: 20140328
  Receipt Date: 20140328
  Transmission Date: 20141002
  Serious: Yes (Hospitalization)
  Sender: FDA-Public Use
  Company Number: CL-PFIZER INC-2014084587

PATIENT
  Age: 83 Year
  Sex: Female

DRUGS (2)
  1. XALATAN [Suspect]
     Indication: GLAUCOMA
     Dosage: 5 DROPS IN EACH EYE
     Route: 047
     Dates: start: 2001
  2. PARACETAMOL [Concomitant]
     Dosage: UNK

REACTIONS (3)
  - Angiopathy [Unknown]
  - Mental disorder [Not Recovered/Not Resolved]
  - Incorrect dose administered [Not Recovered/Not Resolved]
